FAERS Safety Report 4816780-7 (Version None)
Quarter: 2005Q4

REPORT INFORMATION
  Report Type: 
  Country: None (occurrence: None)
  Receive Date: 20051031
  Receipt Date: 20051031
  Transmission Date: 20060501
  Serious: Yes (Other)
  Sender: FDA-Public Use
  Company Number: None

PATIENT
  Age: 70 Year
  Sex: Male
  Weight: 120.2032 kg

DRUGS (1)
  1. CYMBALTA [Suspect]
     Indication: NEUROPATHY
     Dosage: 1     DAILY  PO
     Route: 048
     Dates: start: 20040101, end: 20051028

REACTIONS (3)
  - CHROMATURIA [None]
  - PRURITUS [None]
  - URINE ODOUR ABNORMAL [None]
